FAERS Safety Report 5830621-0 (Version None)
Quarter: 2008Q3

REPORT INFORMATION
  Report Type: 
  Country: None (occurrence: None)
  Receive Date: 20080801
  Receipt Date: 20070821
  Transmission Date: 20090109
  Serious: No
  Sender: FDA-Public Use
  Company Number: US-BRISTOL-MYERS SQUIBB COMPANY-13884572

PATIENT
  Age: 70 Year
  Sex: Female

DRUGS (3)
  1. COUMADIN [Suspect]
     Indication: ATRIAL FIBRILLATION
     Dosage: RESTARTED ON UNKNOWN DATE
     Dates: end: 20060101
  2. VITAMIN TAB [Concomitant]
  3. CALCIUM [Concomitant]

REACTIONS (2)
  - MALAISE [None]
  - MUSCULAR WEAKNESS [None]
